FAERS Safety Report 8188667-6 (Version None)
Quarter: 2012Q1

REPORT INFORMATION
  Report Type: 
  Country: None (occurrence: None)
  Receive Date: 20120306
  Receipt Date: 20120227
  Transmission Date: 20120608
  Serious: Yes (Other)
  Sender: FDA-Public Use
  Company Number: US-JNJFOC-20120204766

PATIENT
  Age: 71 Year
  Sex: Female
  Weight: 78.02 kg

DRUGS (8)
  1. TYLENOL-500 [Suspect]
     Route: 048
     Dates: start: 20120131, end: 20120131
  2. BENADRYL [Suspect]
     Indication: URTICARIA
     Route: 048
     Dates: start: 20120131, end: 20120131
  3. NORVASC [Concomitant]
     Indication: HYPERTENSION
     Route: 065
  4. BENADRYL [Suspect]
     Indication: PRURITUS
     Route: 048
     Dates: start: 20120131, end: 20120131
  5. TYLENOL-500 [Suspect]
     Route: 048
     Dates: start: 20120131, end: 20120131
  6. TYLENOL-500 [Suspect]
     Indication: RHEUMATOID ARTHRITIS
     Route: 048
  7. METFORMIN HCL [Concomitant]
     Indication: DIABETES MELLITUS
     Route: 065
  8. TYLENOL-500 [Suspect]
     Indication: PRODUCT USED FOR UNKNOWN INDICATION
     Route: 048

REACTIONS (4)
  - PRURITUS [None]
  - ANGIOEDEMA [None]
  - URTICARIA [None]
  - OFF LABEL USE [None]
